FAERS Safety Report 8433578-1 (Version None)
Quarter: 2012Q2

REPORT INFORMATION
  Report Type: 
  Country: None (occurrence: None)
  Receive Date: 20120323
  Receipt Date: 20110922
  Transmission Date: 20120825
  Serious: Yes (Other)
  Sender: FDA-Public Use
  Company Number: 163-21880-11071921

PATIENT
  Age: 72 Year
  Sex: Female

DRUGS (13)
  1. BORTEZOMIB [Suspect]
     Indication: MULTIPLE MYELOMA
     Dosage: 2 MG, DAILY ON DAY 1, 8, EVERY 3 WEEKS
     Dates: start: 20100101
  2. PRIOLSEC (OMEPRAZOLE) [Concomitant]
  3. POTASSIUM CHLORIDE [Concomitant]
  4. MAGNESIUM (MAGNESIUM) [Concomitant]
  5. DEXAMETHASONE [Concomitant]
  6. VALACYCLOVIR [Concomitant]
  7. MULTIVITAMIN [Concomitant]
  8. ASPIRIN [Concomitant]
  9. ACTONEL [Concomitant]
  10. ZESTORETIC [Concomitant]
  11. REVLIMID [Suspect]
     Indication: MULTIPLE MYELOMA
     Dosage: 25 MG, 1 IN 1 D, PO; 25 MG, X 14 DAYS, PO; 10 MG, 1 IN 1 D, PO
     Route: 048
     Dates: start: 20110701
  12. REVLIMID [Suspect]
     Indication: MULTIPLE MYELOMA
     Dosage: 25 MG, 1 IN 1 D, PO; 25 MG, X 14 DAYS, PO; 10 MG, 1 IN 1 D, PO
     Route: 048
     Dates: start: 20101219
  13. REVLIMID [Suspect]
     Indication: MULTIPLE MYELOMA
     Dosage: 25 MG, 1 IN 1 D, PO; 25 MG, X 14 DAYS, PO; 10 MG, 1 IN 1 D, PO
     Route: 048
     Dates: start: 20110315

REACTIONS (2)
  - PLATELET COUNT DECREASED [None]
  - WHITE BLOOD CELL COUNT DECREASED [None]
